FAERS Safety Report 5613586-6 (Version None)
Quarter: 2008Q1

REPORT INFORMATION
  Report Type: 
  Country: None (occurrence: None)
  Receive Date: 20080205
  Receipt Date: 20080129
  Transmission Date: 20080703
  Serious: Yes (Hospitalization, Other)
  Sender: FDA-Public Use
  Company Number: PHEH2008US01402

PATIENT
  Age: 60 Year
  Sex: Female

DRUGS (1)
  1. RECLAST [Suspect]
     Dosage: 5 MG, UNK
     Route: 042
     Dates: start: 20080122, end: 20080122

REACTIONS (6)
  - ASTHENIA [None]
  - BACK PAIN [None]
  - DYSPNOEA [None]
  - HEADACHE [None]
  - NAUSEA [None]
  - SWELLING FACE [None]
